FAERS Safety Report 5571012-X (Version None)
Quarter: 2007Q4

REPORT INFORMATION
  Report Type: 
  Country: None (occurrence: None)
  Receive Date: 20071221
  Receipt Date: 20071211
  Transmission Date: 20080405
  Serious: Yes (Congenital Anomaly)
  Sender: FDA-Public Use
  Company Number: US-TEVA-161265USA

PATIENT
  Sex: Female

DRUGS (2)
  1. PAROXETINE HYDROCHLORIDE 10 MG, 20 MG, 30 MG + 40 MG TABLETS [Suspect]
     Indication: DEPRESSION
     Route: 048
  2. PAROXETINE HYDROCHLORIDE 10 MG, 20 MG, 30 MG + 40 MG TABLETS [Suspect]
     Route: 064

REACTIONS (2)
  - CONGENITAL ANOMALY [None]
  - FOETAL DAMAGE [None]
